FAERS Safety Report 12199404 (Version 1)
Quarter: 2016Q1

REPORT INFORMATION
  Report Type: Spontaneous
  Country: US (occurrence: None)
  Receive Date: 20160321
  Receipt Date: 20160321
  Transmission Date: 20160526
  Serious: Yes (Hospitalization)
  Sender: FDA-Public Use
  Company Number: None

PATIENT
  Age: 54 Year
  Sex: Male

DRUGS (3)
  1. PANTOPRAZOLE [Suspect]
     Active Substance: PANTOPRAZOLE SODIUM
  2. HYDROCORTISONE. [Suspect]
     Active Substance: HYDROCORTISONE
  3. PREDNISONE. [Suspect]
     Active Substance: PREDNISONE

REACTIONS (5)
  - Diverticulitis [None]
  - Clostridium test positive [None]
  - Gastritis [None]
  - Acute kidney injury [None]
  - Dehydration [None]

NARRATIVE: CASE EVENT DATE: 20150615
